FAERS Safety Report 7277455-0 (Version None)
Quarter: 2011Q1

REPORT INFORMATION
  Report Type: 
  Country: None (occurrence: None)
  Receive Date: 20110207
  Receipt Date: 20110125
  Transmission Date: 20110831
  Serious: Yes (Death)
  Sender: FDA-Public Use
  Company Number: BE-ELI_LILLY_AND_COMPANY-BE201011002941

PATIENT
  Sex: Female
  Weight: 54 kg

DRUGS (8)
  1. LODIXAL [Concomitant]
     Indication: HYPERTENSION
     Dates: start: 19950101
  2. FORTEO [Suspect]
     Indication: OSTEOPOROSIS
     Dosage: 20 UG, DAILY (1/D)
     Route: 065
     Dates: start: 20100208
  3. SYMBICORT [Concomitant]
     Indication: ASTHMA
     Dates: start: 20070101
  4. CIPRALAN [Concomitant]
     Indication: TACHYARRHYTHMIA
     Dates: start: 19940101
  5. MONTELUKAST SODIUM [Concomitant]
     Indication: ASTHMA
     Dates: start: 20070101
  6. BURINEX [Concomitant]
     Indication: HYPERTENSION
     Dates: start: 19950101
  7. LIPITOR [Concomitant]
     Indication: HYPERCHOLESTEROLAEMIA
     Dates: start: 19990101
  8. AMLOR [Concomitant]
     Indication: HYPERTENSION
     Dates: start: 19950101

REACTIONS (2)
  - CARDIO-RESPIRATORY ARREST [None]
  - VENTRICULAR FIBRILLATION [None]
